FAERS Safety Report 7651887-0 (Version None)
Quarter: 2011Q3

REPORT INFORMATION
  Report Type: 
  Country: None (occurrence: None)
  Receive Date: 20110803
  Receipt Date: 20110726
  Transmission Date: 20111222
  Serious: Yes (Hospitalization)
  Sender: FDA-Public Use
  Company Number: US-BIOGENIDEC-2011BI001917

PATIENT
  Age: 46 Year
  Sex: Female
  Weight: 126 kg

DRUGS (6)
  1. SPIRONOLACTLONE [Concomitant]
     Indication: BLOOD PRESSURE INCREASED
  2. TYSABRI [Suspect]
     Route: 042
     Dates: start: 20110413
  3. CLONIDINE [Concomitant]
     Indication: BLOOD PRESSURE INCREASED
  4. POTASSIUM [Concomitant]
     Indication: BLOOD PRESSURE INCREASED
  5. TYSABRI [Suspect]
     Indication: MULTIPLE SCLEROSIS
     Route: 042
     Dates: start: 20100707, end: 20101122
  6. LISINOPRIL [Concomitant]
     Indication: BLOOD PRESSURE INCREASED

REACTIONS (8)
  - HEMIPARESIS [None]
  - LOSS OF CONTROL OF LEGS [None]
  - VISUAL IMPAIRMENT [None]
  - CHEST PAIN [None]
  - DIZZINESS [None]
  - HEADACHE [None]
  - MUSCLE SPASMS [None]
  - HYPERTENSION [None]
